FAERS Safety Report 5198859-6 (Version None)
Quarter: 2007Q1

REPORT INFORMATION
  Report Type: 
  Country: None (occurrence: None)
  Receive Date: 20070104
  Receipt Date: 20061225
  Transmission Date: 20070707
  Serious: Yes (Death)
  Sender: FDA-Public Use
  Company Number: JP-BRISTOL-MYERS SQUIBB COMPANY-13626437

PATIENT
  Age: 21 Month
  Sex: Male

DRUGS (3)
  1. VEPESID [Suspect]
     Indication: YOLK SAC TUMOUR SITE UNSPECIFIED
     Route: 041
  2. PARAPLATIN [Suspect]
     Indication: YOLK SAC TUMOUR SITE UNSPECIFIED
     Route: 041
  3. ALKERAN [Concomitant]
     Indication: YOLK SAC TUMOUR SITE UNSPECIFIED

REACTIONS (3)
  - HEPATITIS FULMINANT [None]
  - HERPES ZOSTER DISSEMINATED [None]
  - MULTI-ORGAN FAILURE [None]
